FAERS Safety Report 23222309 (Version 2)
Quarter: 2023Q4

REPORT INFORMATION
  Report Type: Spontaneous
  Country: US (occurrence: US)
  Receive Date: 20231123
  Receipt Date: 20231201
  Transmission Date: 20240110
  Serious: Yes (Hospitalization, Other)
  Sender: FDA-Public Use
  Company Number: US-PFIZER INC-202300392976

PATIENT
  Age: 81 Year
  Sex: Female

DRUGS (2)
  1. GENOTROPIN [Suspect]
     Active Substance: SOMATROPIN
     Dosage: 0.3 MG, DAILY
  2. GENOTROPIN [Suspect]
     Active Substance: SOMATROPIN
     Dosage: 0.3 MG (6 DAYS/WEEK)

REACTIONS (4)
  - Cerebrovascular accident [Unknown]
  - Feeling abnormal [Unknown]
  - Product dose omission issue [Unknown]
  - Device power source issue [Unknown]
